FAERS Safety Report 10651636 (Version 4)
Quarter: 2015Q1

REPORT INFORMATION
  Report Type: Report from Study
  Country: US (occurrence: US)
  Receive Date: 20141215
  Receipt Date: 20150110
  Transmission Date: 20150720
  Serious: Yes (Other)
  Sender: FDA-Public Use
  Company Number: US-ABBVIE-14P-163-1292556-00

PATIENT
  Age: 25 Year
  Sex: Female

DRUGS (7)
  1. AMBIEN [Concomitant]
     Active Substance: ZOLPIDEM TARTRATE
     Indication: PRODUCT USED FOR UNKNOWN INDICATION
  2. PROMETHAZINE [Concomitant]
     Active Substance: PROMETHAZINE\PROMETHAZINE HYDROCHLORIDE
     Indication: PRODUCT USED FOR UNKNOWN INDICATION
  3. LUPANETA PACK [Suspect]
     Active Substance: ISOPROPYL ALCOHOL\LEUPROLIDE ACETATE\NORETHINDRONE ACETATE
     Indication: ENDOMETRIOSIS
     Route: 065
     Dates: start: 20140918
  4. NORCO [Concomitant]
     Active Substance: ACETAMINOPHEN\HYDROCODONE BITARTRATE
     Indication: PRODUCT USED FOR UNKNOWN INDICATION
     Dosage: 5MG/325MG AT NIGHT
  5. MOBIC [Concomitant]
     Active Substance: MELOXICAM
     Indication: PRODUCT USED FOR UNKNOWN INDICATION
  6. LUPANETA PACK [Suspect]
     Active Substance: ISOPROPYL ALCOHOL\LEUPROLIDE ACETATE\NORETHINDRONE ACETATE
     Indication: ENDOMETRIOSIS
     Route: 065
     Dates: start: 20140918
  7. PROZAC [Concomitant]
     Active Substance: FLUOXETINE HYDROCHLORIDE
     Indication: PRODUCT USED FOR UNKNOWN INDICATION

REACTIONS (13)
  - Gait disturbance [Not Recovered/Not Resolved]
  - Menstruation irregular [Unknown]
  - Cholecystectomy [Unknown]
  - Hot flush [Not Recovered/Not Resolved]
  - Back pain [Unknown]
  - Eye swelling [Unknown]
  - Pelvic pain [Unknown]
  - Menstruation irregular [Not Recovered/Not Resolved]
  - Pain [Not Recovered/Not Resolved]
  - Eye irritation [Unknown]
  - Dizziness [Not Recovered/Not Resolved]
  - Menorrhagia [Unknown]
  - Nausea [Not Recovered/Not Resolved]

NARRATIVE: CASE EVENT DATE: 201410
